FAERS Safety Report 22656917 (Version 1)
Quarter: 2023Q2

REPORT INFORMATION
  Report Type: Report from Study
  Country: CO (occurrence: CO)
  Receive Date: 20230630
  Receipt Date: 20230630
  Transmission Date: 20230722
  Serious: Yes (Other)
  Sender: FDA-Public Use
  Company Number: CO-ABBVIE-4715633

PATIENT
  Age: 52 Year
  Sex: Female
  Weight: 57 kg

DRUGS (3)
  1. HUMIRA [Suspect]
     Active Substance: ADALIMUMAB
     Indication: Uveitis
     Dosage: FORM STRENGTH: 40 MILLIGRAM
     Route: 058
     Dates: start: 20190704, end: 20230511
  2. TRAMADOL [Suspect]
     Active Substance: TRAMADOL
     Indication: Pyrexia
     Route: 042
  3. CEPHALEXIN [Concomitant]
     Active Substance: CEPHALEXIN
     Indication: Furuncle
     Route: 048

REACTIONS (12)
  - Catheter placement [Recovering/Resolving]
  - Genital abscess [Recovering/Resolving]
  - Blood triglycerides abnormal [Not Recovered/Not Resolved]
  - Pyrexia [Recovering/Resolving]
  - Blood cholesterol abnormal [Not Recovered/Not Resolved]
  - Furuncle [Recovering/Resolving]
  - Blood triglycerides abnormal [Unknown]
  - Skin exfoliation [Recovering/Resolving]
  - Bone pain [Recovering/Resolving]
  - Blood pressure increased [Unknown]
  - Nodule [Recovering/Resolving]
  - Furuncle [Recovered/Resolved]

NARRATIVE: CASE EVENT DATE: 20190901
